FAERS Safety Report 6704038-0 (Version None)
Quarter: 2010Q2

REPORT INFORMATION
  Report Type: 
  Country: None (occurrence: None)
  Receive Date: 20100430
  Receipt Date: 20100421
  Transmission Date: 20101027
  Serious: Yes (Other)
  Sender: FDA-Public Use
  Company Number: US-PFIZER INC-2010036561

PATIENT
  Sex: Female
  Weight: 81.179 kg

DRUGS (13)
  1. CADUET [Suspect]
     Indication: HYPERTENSION
     Dosage: 5MG/40MG DAILY
     Route: 048
     Dates: start: 20040101
  2. CADUET [Suspect]
     Indication: BLOOD CHOLESTEROL
  3. PANTOPRAZOLE [Concomitant]
     Dosage: UNK
  4. FISH OIL [Concomitant]
     Dosage: UNK
  5. IRON [Concomitant]
     Indication: ANAEMIA
     Dosage: UNK
  6. VITAMIN B-12 [Concomitant]
     Dosage: UNK
  7. VITAMIN B6 [Concomitant]
     Dosage: UNK
  8. CALCIUM [Concomitant]
     Dosage: UNK
  9. ACETYLSALICYLIC ACID [Concomitant]
     Dosage: UNK
  10. VITAMIN C [Concomitant]
     Dosage: UNK
  11. VITAMIN E [Concomitant]
     Dosage: UNK
  12. Q10 [Concomitant]
     Dosage: UNK
  13. SPIRIVA [Concomitant]
     Dosage: UNK

REACTIONS (1)
  - CHEILITIS [None]
